FAERS Safety Report 15342528 (Version 2)
Quarter: 2018Q3

REPORT INFORMATION
  Report Type: Spontaneous
  Country: FR (occurrence: FR)
  Receive Date: 20180903
  Receipt Date: 20180912
  Transmission Date: 20181010
  Serious: Yes (Other)
  Sender: FDA-Public Use
  Company Number: FR-MERCK KGAA-2054557

PATIENT
  Age: 55 Year
  Sex: Female

DRUGS (1)
  1. NOVOTHYROX [Suspect]
     Active Substance: LEVOTHYROXINE SODIUM
     Indication: PRODUCT USED FOR UNKNOWN INDICATION

REACTIONS (16)
  - Feeling drunk [None]
  - Asthenia [None]
  - Hypertension [None]
  - Palpitations [None]
  - Oedema peripheral [None]
  - Decreased appetite [None]
  - Abdominal pain upper [None]
  - Constipation [None]
  - Vision blurred [None]
  - Vertigo [None]
  - Myalgia [None]
  - Headache [None]
  - Bed rest [None]
  - Weight increased [None]
  - Alopecia [None]
  - Diarrhoea [None]

NARRATIVE: CASE EVENT DATE: 201707
